FAERS Safety Report 9960979 (Version 1)
Quarter: 2014Q1

REPORT INFORMATION
  Report Type: Report from Study
  Country: US (occurrence: US)
  Receive Date: 20140305
  Receipt Date: 20140305
  Transmission Date: 20141002
  Serious: No
  Sender: FDA-Public Use
  Company Number: US-ABBVIE-13P-163-1109627-00

PATIENT
  Age: 58 Year
  Sex: Female

DRUGS (18)
  1. HUMIRA [Suspect]
     Indication: COLITIS ULCERATIVE
     Dates: start: 20130515
  2. SINGULAIR [Concomitant]
     Indication: SINUS DISORDER
  3. FLONASE [Concomitant]
     Indication: SINUS DISORDER
  4. METFORMIN [Concomitant]
     Indication: DIABETES MELLITUS
     Dosage: 2 TABS DAILY
  5. VENTOLIN [Concomitant]
     Indication: BRONCHITIS CHRONIC
  6. VENTOLIN [Concomitant]
     Indication: CHRONIC OBSTRUCTIVE PULMONARY DISEASE
  7. SYMBICORT [Concomitant]
     Indication: BRONCHITIS CHRONIC
     Dosage: DAILY
  8. SYMBICORT [Concomitant]
     Indication: CHRONIC OBSTRUCTIVE PULMONARY DISEASE
  9. NIMODIPINE [Concomitant]
     Indication: PRODUCT USED FOR UNKNOWN INDICATION
  10. AVAPRO [Concomitant]
     Indication: PRODUCT USED FOR UNKNOWN INDICATION
  11. BISOPROLOL [Concomitant]
     Indication: HYPERTENSION
     Dosage: DAILY
  12. PREMPRO [Concomitant]
     Indication: HORMONE REPLACEMENT THERAPY
     Dosage: DAILY
  13. NEXIUM [Concomitant]
     Indication: GASTROOESOPHAGEAL REFLUX DISEASE
     Dosage: DAILY
  14. LEVOTHYROXINE [Concomitant]
     Indication: HYPOTHYROIDISM
     Dosage: DAILY
  15. DELZICOL [Concomitant]
     Indication: COLITIS ULCERATIVE
     Dosage: DAILY
  16. PROBIOTICS [Concomitant]
     Indication: COLITIS ULCERATIVE
     Dosage: DAILY
  17. NIACIN [Concomitant]
     Indication: CARDIAC DISORDER
  18. FISH OIL [Concomitant]
     Indication: DRY EYE

REACTIONS (2)
  - Vomiting [Not Recovered/Not Resolved]
  - Diarrhoea [Not Recovered/Not Resolved]
